FAERS Safety Report 8682575 (Version 6)
Quarter: 2013Q2

REPORT INFORMATION
  Report Type: Spontaneous
  Country: JP (occurrence: JP)
  Receive Date: 20120725
  Receipt Date: 20130422
  Transmission Date: 20140414
  Serious: Yes (Other)
  Sender: FDA-Public Use
  Company Number: JP-009507513-1207JPN000654

PATIENT
  Age: 74 Year
  Sex: Female

DRUGS (1)
  1. FOSAMAC TABLETS 35MG [Suspect]
     Indication: OSTEOPOROSIS
     Dosage: 35 MG, QW
     Route: 048

REACTIONS (3)
  - Femur fracture [Unknown]
  - Femur fracture [Unknown]
  - Femur fracture [Recovering/Resolving]
